FAERS Safety Report 19991943 (Version 4)
Quarter: 2022Q3

REPORT INFORMATION
  Report Type: Spontaneous
  Country: US (occurrence: US)
  Receive Date: 20211025
  Receipt Date: 20220805
  Transmission Date: 20221026
  Serious: Yes (Death, Hospitalization, Other)
  Sender: FDA-Public Use
  Company Number: US-PFIZER INC-202101192460

PATIENT
  Age: 62 Year
  Sex: Male

DRUGS (1)
  1. INLYTA [Suspect]
     Active Substance: AXITINIB
     Dosage: UNK

REACTIONS (7)
  - Lung disorder [Fatal]
  - Death [Fatal]
  - Deafness [Unknown]
  - Muscle strain [Unknown]
  - Asthenia [Unknown]
  - Eating disorder [Unknown]
  - Weight decreased [Unknown]
